FAERS Safety Report 4917048-0 (Version None)
Quarter: 2006Q1

REPORT INFORMATION
  Report Type: 
  Country: None (occurrence: None)
  Receive Date: 20060221
  Receipt Date: 20060206
  Transmission Date: 20060701
  Serious: Yes (Hospitalization)
  Sender: FDA-Public Use
  Company Number: PHEH2006US01899

PATIENT
  Age: 78 Year
  Sex: Male
  Weight: 76.19 kg

DRUGS (2)
  1. FORADIL [Suspect]
     Indication: CHRONIC OBSTRUCTIVE PULMONARY DISEASE
     Dosage: 12MCG, EVERY 12 HOURS
     Dates: start: 20060112, end: 20060207
  2. FORADIL [Suspect]
     Dosage: UNK, UNK
     Route: 048
     Dates: start: 20060206, end: 20060206

REACTIONS (3)
  - DISEASE PROGRESSION [None]
  - HYPERTENSIVE HEART DISEASE [None]
  - INCORRECT ROUTE OF DRUG ADMINISTRATION [None]
